FAERS Safety Report 7688728-1 (Version None)
Quarter: 2011Q3

REPORT INFORMATION
  Report Type: 
  Country: None (occurrence: None)
  Receive Date: 20110817
  Receipt Date: 20110805
  Transmission Date: 20111222
  Serious: Yes (Hospitalization)
  Sender: FDA-Public Use
  Company Number: GR-GLAXOSMITHKLINE-B0739967A

PATIENT
  Sex: Male
  Weight: 73 kg

DRUGS (7)
  1. IRBESARTAN AND HYDROCHLOROTHIAZIDE [Concomitant]
     Indication: HYPERTENSION
     Route: 048
  2. PROPAFENONE HYDROCHLORIDE [Concomitant]
     Indication: HYPERTENSION
     Dosage: 450MG PER DAY
  3. MEDROL [Concomitant]
     Indication: PROPHYLAXIS
     Dosage: 8MG PER DAY
     Route: 048
     Dates: start: 20110629, end: 20110802
  4. PLAVIX [Concomitant]
     Indication: HYPERTENSION
     Dosage: 75MG PER DAY
     Route: 048
  5. MANIDIPINE [Concomitant]
     Indication: HYPERTENSION
     Route: 048
  6. ZANTAC [Concomitant]
     Indication: PROPHYLAXIS
     Dosage: 300MG PER DAY
     Route: 048
     Dates: start: 20110629
  7. LAPATINIB [Suspect]
     Indication: LUNG NEOPLASM MALIGNANT
     Dosage: 1500MG PER DAY
     Route: 048
     Dates: start: 20110704

REACTIONS (1)
  - LUNG INFECTION [None]
